FAERS Safety Report 26038039 (Version 3)
Quarter: 2025Q4

REPORT INFORMATION
  Report Type: Report from Study
  Country: EU (occurrence: EU)
  Receive Date: 20251112
  Receipt Date: 20251119
  Transmission Date: 20260117
  Serious: Yes (Death, Hospitalization)
  Sender: ABBVIE
  Company Number: EU-ABBVIE-6540437

PATIENT
  Age: 77 Year
  Sex: Female

DRUGS (13)
  1. CARBIDOPA\LEVODOPA [Suspect]
     Active Substance: CARBIDOPA\LEVODOPA
     Indication: Parkinson^s disease
     Route: 050
     Dates: start: 20240826
  2. CARBIDOPA\LEVODOPA [Suspect]
     Active Substance: CARBIDOPA\LEVODOPA
     Dosage: CONTINUOUS
     Route: 050
     Dates: start: 20210903
  3. Cinemet cr half [Concomitant]
     Indication: Product used for unknown indication
     Dosage: AT NIGHT
  4. LANSOPRAZOLE [Concomitant]
     Active Substance: LANSOPRAZOLE
     Indication: Product used for unknown indication
  5. QUETIAPINE [Concomitant]
     Active Substance: QUETIAPINE
     Indication: Product used for unknown indication
     Dosage: AS NEEDED
  6. Atenomel [Concomitant]
     Indication: Product used for unknown indication
  7. Spasmonal [Concomitant]
     Indication: Product used for unknown indication
     Dosage: TIME INTERVAL: 0.33333333 DAYS
  8. BENSERAZIDE HYDROCHLORIDE\LEVODOPA [Concomitant]
     Active Substance: BENSERAZIDE HYDROCHLORIDE\LEVODOPA
     Indication: Product used for unknown indication
     Dosage: THREE TABLETS PER DAY AS NEEDED
  9. RIVASTIGMINE [Concomitant]
     Active Substance: RIVASTIGMINE
     Indication: Product used for unknown indication
     Dosage: PATCH
  10. RIVOTRIL [Concomitant]
     Active Substance: CLONAZEPAM
     Indication: Product used for unknown indication
     Dosage: AT NIGHT
  11. CARBIDOPA\LEVODOPA [Concomitant]
     Active Substance: CARBIDOPA\LEVODOPA
     Indication: Product used for unknown indication
     Dosage: FIVE TABLETS PER DAY AS NEEDED
  12. SINEMET [Concomitant]
     Active Substance: CARBIDOPA\LEVODOPA
     Indication: Product used for unknown indication
     Dosage: FIVE TABLETS PER DAY AS NEEDED
  13. ACETAMINOPHEN [Concomitant]
     Active Substance: ACETAMINOPHEN
     Indication: Product used for unknown indication

REACTIONS (3)
  - Death [Fatal]
  - Hypotension [Not Recovered/Not Resolved]
  - Coma scale abnormal [Not Recovered/Not Resolved]

NARRATIVE: CASE EVENT DATE: 20251101
